FAERS Safety Report 20570325 (Version 2)
Quarter: 2022Q2

REPORT INFORMATION
  Report Type: Spontaneous
  Country: US (occurrence: US)
  Receive Date: 20220309
  Receipt Date: 20220505
  Transmission Date: 20220721
  Serious: Yes (Other)
  Sender: FDA-Public Use
  Company Number: US-SA-SAC20220304000306

PATIENT
  Age: 59 Year
  Sex: Male

DRUGS (4)
  1. ALPROLIX [Suspect]
     Active Substance: EFTRENONACOG ALFA
     Dosage: 4000 IU, PRN
  2. ALPROLIX [Suspect]
     Active Substance: EFTRENONACOG ALFA
     Dosage: 4000 IU, PRN
  3. ALPROLIX [Suspect]
     Active Substance: EFTRENONACOG ALFA
     Dosage: 4000 U
  4. ALPROLIX [Suspect]
     Active Substance: EFTRENONACOG ALFA
     Dosage: 4000 U

REACTIONS (2)
  - Haemorrhage [Unknown]
  - Limb injury [Unknown]

NARRATIVE: CASE EVENT DATE: 20220215
